FAERS Safety Report 14252070 (Version 1)
Quarter: 2017Q4

REPORT INFORMATION
  Report Type: Report from Study
  Country: US (occurrence: US)
  Receive Date: 20171205
  Receipt Date: 20171205
  Transmission Date: 20180321
  Serious: Yes (Other)
  Sender: FDA-Public Use
  Company Number: US-PFIZER INC-2017514111

PATIENT

DRUGS (4)
  1. CARMUSTINE [Suspect]
     Active Substance: CARMUSTINE
     Indication: HODGKIN^S DISEASE
     Dosage: 300 MG/M2, UNK (ON DAY -6)
  2. MELPHALAN. [Suspect]
     Active Substance: MELPHALAN
     Indication: HODGKIN^S DISEASE
     Dosage: 140 MG/M2, UNK (ON DAY -1)
  3. ETOPOSIDE. [Suspect]
     Active Substance: ETOPOSIDE
     Indication: HODGKIN^S DISEASE
     Dosage: 200 MG/M2, 2X/DAY (EVERY 12 HR ON DAYS -5, -4, -3)
  4. CYTARABINE. [Suspect]
     Active Substance: CYTARABINE
     Indication: HODGKIN^S DISEASE
     Dosage: 100 MG/M2, 2X/DAY (EVERY 12 HR ON DAYS -5, -4, -3, -2)

REACTIONS (1)
  - Stevens-Johnson syndrome [Unknown]
